FAERS Safety Report 23010618 (Version 2)
Quarter: 2023Q4

REPORT INFORMATION
  Report Type: Spontaneous
  Country: HR (occurrence: HR)
  Receive Date: 20230929
  Receipt Date: 20231010
  Transmission Date: 20240110
  Serious: Yes (Other)
  Sender: FDA-Public Use
  Company Number: PA2023HR000109

PATIENT
  Age: 68 Year
  Sex: Male

DRUGS (5)
  1. REMIMAZOLAM [Suspect]
     Active Substance: REMIMAZOLAM
     Indication: Sedative therapy
     Dosage: 5 MG
     Route: 042
     Dates: start: 20230908, end: 20230908
  2. REMIMAZOLAM [Suspect]
     Active Substance: REMIMAZOLAM
     Dosage: 2.5 MG
     Route: 042
     Dates: start: 20230908, end: 20230908
  3. REMIMAZOLAM [Suspect]
     Active Substance: REMIMAZOLAM
     Dosage: 2.5 MG
     Route: 042
     Dates: start: 20230908, end: 20230908
  4. OMEPRAZOLE [Concomitant]
     Active Substance: OMEPRAZOLE
     Indication: Product used for unknown indication
     Dosage: UNK
     Route: 065
  5. UNSPECIFIED INGREDIENT [Concomitant]
     Active Substance: UNSPECIFIED INGREDIENT
     Indication: Product used for unknown indication
     Dosage: UNK
     Route: 065

REACTIONS (3)
  - Bronchospasm [Recovered/Resolved]
  - Aspiration [Recovered/Resolved]
  - Hiccups [Recovered/Resolved]

NARRATIVE: CASE EVENT DATE: 20230908
